FAERS Safety Report 24753074 (Version 1)
Quarter: 2024Q4

REPORT INFORMATION
  Report Type: Spontaneous
  Country: PR (occurrence: None)
  Receive Date: 20241218
  Receipt Date: 20241218
  Transmission Date: 20250115
  Serious: Yes (Disabling)
  Sender: Public
  Company Number: None

PATIENT
  Age: 60 Year
  Sex: Male
  Weight: 73.48 kg

DRUGS (9)
  1. MOLNUPIRAVIR [Suspect]
     Active Substance: MOLNUPIRAVIR
     Indication: COVID-19
     Dosage: OTHER QUANTITY : 4 CAPSULES;?FREQUENCY : EVERY 12 HOURS;?
     Route: 048
     Dates: start: 20230613, end: 20230617
  2. ACETAMINOPHEN [Concomitant]
     Active Substance: ACETAMINOPHEN
  3. IBERSARTAN AND HYDROCHLOROTHIAZIDE [Concomitant]
  4. TRICOR [Concomitant]
     Active Substance: FENOFIBRATE
  5. ASPIRIN [Concomitant]
     Active Substance: ASPIRIN
  6. ATORVASTATIN [Concomitant]
     Active Substance: ATORVASTATIN
  7. MELOXICAM [Concomitant]
     Active Substance: MELOXICAM
  8. AMLODIPINE BESYLATE [Concomitant]
     Active Substance: AMLODIPINE BESYLATE
  9. VITAMIN D [Concomitant]
     Active Substance: VITAMIN D NOS

REACTIONS (8)
  - Rash [None]
  - Discomfort [None]
  - Muscle spasms [None]
  - Limb discomfort [None]
  - Nodule [None]
  - Ulcer [None]
  - Gait disturbance [None]
  - Erythema nodosum [None]

NARRATIVE: CASE EVENT DATE: 20230703
